FAERS Safety Report 14196760 (Version 1)
Quarter: 2017Q4

REPORT INFORMATION
  Report Type: Spontaneous
  Country: US (occurrence: US)
  Receive Date: 20171116
  Receipt Date: 20171116
  Transmission Date: 20180321
  Serious: Yes (Hospitalization, Other)
  Sender: FDA-Public Use
  Company Number: US-GLAXOSMITHKLINE-US2017175123

PATIENT
  Sex: Female

DRUGS (24)
  1. OMEPRAZOLE. [Concomitant]
     Active Substance: OMEPRAZOLE
  2. ADVAIR HFA [Suspect]
     Active Substance: FLUTICASONE PROPIONATE\SALMETEROL XINAFOATE
     Indication: ASTHMA
     Dosage: 2 PUFF(S), BID
     Route: 055
     Dates: start: 201707
  3. ALEVE [Concomitant]
     Active Substance: NAPROXEN SODIUM
  4. IPRATROPIUM BROMIDE NASAL SPRAY [Concomitant]
     Active Substance: IPRATROPIUM BROMIDE
  5. VENTOLIN HFA [Suspect]
     Active Substance: ALBUTEROL SULFATE
     Indication: ASTHMA
     Dosage: 2 PUFF(S), PRN
     Route: 055
  6. ASPIRIN. [Concomitant]
     Active Substance: ASPIRIN
  7. ATENOLOL. [Concomitant]
     Active Substance: ATENOLOL
  8. GRAPE SEED [Concomitant]
     Active Substance: HERBALS\VITIS VINIFERA SEED
  9. MAGNESIUM [Concomitant]
     Active Substance: MAGNESIUM
  10. TEMAZEPAM. [Concomitant]
     Active Substance: TEMAZEPAM
  11. FLORAJEN 3 [Concomitant]
     Active Substance: PROBIOTICS NOS
  12. DOXYCYCLINE. [Concomitant]
     Active Substance: DOXYCYCLINE
  13. COQ10 [Concomitant]
     Active Substance: UBIDECARENONE
  14. BIOTIN [Concomitant]
     Active Substance: BIOTIN
  15. LEVOTHYROXINE. [Concomitant]
     Active Substance: LEVOTHYROXINE
  16. VITAMIN B12 [Concomitant]
     Active Substance: CYANOCOBALAMIN
  17. FISH OIL [Concomitant]
     Active Substance: FISH OIL
  18. IBUPROFEN. [Concomitant]
     Active Substance: IBUPROFEN
  19. SIMVASTATIN. [Concomitant]
     Active Substance: SIMVASTATIN
  20. EXCEDRIN [Concomitant]
     Active Substance: ACETAMINOPHEN\ASPIRIN\CAFFEINE
  21. HYDROCHLOROTHIAZIDE. [Concomitant]
     Active Substance: HYDROCHLOROTHIAZIDE
  22. CRANBERRY. [Concomitant]
     Active Substance: CRANBERRY
  23. FOLIC ACID. [Concomitant]
     Active Substance: FOLIC ACID
  24. VITAMIN D3 [Concomitant]
     Active Substance: CHOLECALCIFEROL

REACTIONS (11)
  - Drug effect decreased [Unknown]
  - Dyskinesia oesophageal [Not Recovered/Not Resolved]
  - Dyspnoea [Not Recovered/Not Resolved]
  - Spinal decompression [Unknown]
  - Dysphonia [Unknown]
  - Varicose vein operation [Recovered/Resolved]
  - Rocky mountain spotted fever [Recovered/Resolved]
  - Choking [Unknown]
  - Endoscopy [Unknown]
  - Wrong technique in product usage process [Unknown]
  - Underdose [Unknown]
